FAERS Safety Report 17560446 (Version 2)
Quarter: 2020Q1

REPORT INFORMATION
  Report Type: Spontaneous
  Country: US (occurrence: US)
  Receive Date: 20200319
  Receipt Date: 20200327
  Transmission Date: 20200409
  Serious: Yes (Other)
  Sender: FDA-Public Use
  Company Number: US-DRREDDYS-USA/USA/20/0120967

PATIENT

DRUGS (6)
  1. CYCLOPHOSPHAMIDE. [Suspect]
     Active Substance: CYCLOPHOSPHAMIDE
     Indication: EWING-LIKE SARCOMA
     Dosage: EACH CYCLE CONSISTED OF 14-DAYS
     Route: 065
  2. ETOPOSIDE. [Suspect]
     Active Substance: ETOPOSIDE
     Indication: EWING-LIKE SARCOMA
     Dosage: EACH CYCLE CONSISTED OF 14-DAYS
     Route: 065
  3. VINCRISTINE [Suspect]
     Active Substance: VINCRISTINE
     Indication: EWING-LIKE SARCOMA
     Dosage: 2 MG PER DOSE EACH CYCLE CONSISTED OF 14-DAYS
     Route: 065
  4. DOXORUBICIN HYDROCHLORIDE LIPOSOME INJECTION 20 MG/10 ML (2 MG/ML) AND [Suspect]
     Active Substance: DOXORUBICIN HYDROCHLORIDE
     Indication: EWING-LIKE SARCOMA
     Dosage: EACH CYCLE CONSISTED OF 14-DAYS
     Route: 065
  5. IFOSFAMIDE. [Suspect]
     Active Substance: IFOSFAMIDE
     Indication: EWING-LIKE SARCOMA
     Dosage: EACH CYCLE CONSISTED OF 14-DAYS
     Route: 065
  6. PEGFILGRASTIM [Concomitant]
     Active Substance: PEGFILGRASTIM
     Indication: PRODUCT USED FOR UNKNOWN INDICATION
     Route: 065

REACTIONS (1)
  - Haematotoxicity [Unknown]
